FAERS Safety Report 17491605 (Version 1)
Quarter: 2020Q1

REPORT INFORMATION
  Report Type: Spontaneous
  Country: US (occurrence: US)
  Receive Date: 20200303
  Receipt Date: 20200303
  Transmission Date: 20200409
  Serious: No
  Sender: FDA-Public Use
  Company Number: US-NOVOPROD-655695

PATIENT
  Sex: Female

DRUGS (2)
  1. VICTOZA [Suspect]
     Active Substance: LIRAGLUTIDE
     Indication: PRODUCT USED FOR UNKNOWN INDICATION
     Dosage: 0.6 MG
     Route: 058
     Dates: start: 2018
  2. VICTOZA [Suspect]
     Active Substance: LIRAGLUTIDE
     Dosage: 0.6 MG PLUS 5 CLICKS
     Route: 058

REACTIONS (7)
  - Anxiety [Unknown]
  - Increased appetite [Unknown]
  - Agitation [Unknown]
  - Drug intolerance [Unknown]
  - Injection site bruising [Unknown]
  - Off label use [Unknown]
  - Product dose omission [Recovered/Resolved]
